FAERS Safety Report 12579568 (Version 3)
Quarter: 2016Q3

REPORT INFORMATION
  Report Type: Spontaneous
  Country: CH (occurrence: CH)
  Receive Date: 20160721
  Receipt Date: 20160915
  Transmission Date: 20161109
  Serious: Yes (Other)
  Sender: FDA-Public Use
  Company Number: CH-BAYER-2016-139772

PATIENT
  Age: 65 Year
  Sex: Male

DRUGS (3)
  1. XOFIGO [Suspect]
     Active Substance: RADIUM RA-223 DICHLORIDE
     Indication: METASTASES TO BONE
     Dosage: UNK
     Route: 042
     Dates: start: 20160518, end: 20160518
  2. XOFIGO [Suspect]
     Active Substance: RADIUM RA-223 DICHLORIDE
     Indication: PROSTATE CANCER STAGE IV
     Dosage: UNK
     Route: 042
     Dates: start: 20160616, end: 20160616
  3. XTANDI [Concomitant]
     Active Substance: ENZALUTAMIDE

REACTIONS (1)
  - Haematotoxicity [Not Recovered/Not Resolved]

NARRATIVE: CASE EVENT DATE: 201607
